FAERS Safety Report 15898657 (Version 1)
Quarter: 2019Q1

REPORT INFORMATION
  Report Type: Report from Study
  Country: IT (occurrence: IT)
  Receive Date: 20190201
  Receipt Date: 20190201
  Transmission Date: 20190417
  Serious: Yes (Other)
  Sender: FDA-Public Use
  Company Number: IT-ACCORD-104701

PATIENT
  Age: 75 Year
  Sex: Male
  Weight: 75 kg

DRUGS (2)
  1. GEMCITABINE/GEMCITABINE HYDROCHLORIDE [Suspect]
     Active Substance: GEMCITABINE\GEMCITABINE HYDROCHLORIDE
     Indication: BLADDER NEOPLASM
     Route: 042
     Dates: start: 20180412, end: 20180621
  2. CARBOPLATIN. [Suspect]
     Active Substance: CARBOPLATIN
     Indication: BLADDER NEOPLASM
     Route: 042
     Dates: start: 20180412, end: 20180621

REACTIONS (2)
  - Off label use [Unknown]
  - Bone marrow toxicity [Recovering/Resolving]

NARRATIVE: CASE EVENT DATE: 20180509
